FAERS Safety Report 7649859-5 (Version None)
Quarter: 2011Q3

REPORT INFORMATION
  Report Type: 
  Country: None (occurrence: None)
  Receive Date: 20110727
  Receipt Date: 20110718
  Transmission Date: 20111222
  Serious: Yes (Other)
  Sender: FDA-Public Use
  Company Number: IND1-US-2011-0029

PATIENT
  Age: 41 Year
  Sex: Male

DRUGS (10)
  1. LIPITOR [Suspect]
     Indication: PRODUCT USED FOR UNKNOWN INDICATION
     Dosage: 20 MG, ORAL
     Route: 048
  2. NICOTROL [Suspect]
     Indication: PRODUCT USED FOR UNKNOWN INDICATION
     Dosage: 10 MG, INHALATION
     Route: 055
  3. INDOCIN [Suspect]
     Indication: PRODUCT USED FOR UNKNOWN INDICATION
  4. SOMA [Suspect]
     Indication: PRODUCT USED FOR UNKNOWN INDICATION
  5. VIAGRA [Suspect]
     Indication: PRODUCT USED FOR UNKNOWN INDICATION
     Dosage: 100 MG, ORAL
     Route: 048
  6. XANAX [Suspect]
     Indication: PRODUCT USED FOR UNKNOWN INDICATION
  7. AMITRIPTYLINE (AMITRIPTYLINE) (UNKNOWN) (AMITRIPTYLINE) [Suspect]
     Indication: PRODUCT USED FOR UNKNOWN INDICATION
  8. KLONOPIN [Suspect]
     Indication: PRODUCT USED FOR UNKNOWN INDICATION
  9. AMBIEN [Suspect]
     Indication: PRODUCT USED FOR UNKNOWN INDICATION
  10. FLEXERIL [Suspect]
     Indication: PRODUCT USED FOR UNKNOWN INDICATION

REACTIONS (5)
  - OESOPHAGEAL DISORDER [None]
  - SURGERY [None]
  - ANKLE FRACTURE [None]
  - CONVULSION [None]
  - IMPAIRED WORK ABILITY [None]
